FAERS Safety Report 17483878 (Version 1)
Quarter: 2020Q1

REPORT INFORMATION
  Report Type: Spontaneous
  Country: US (occurrence: US)
  Receive Date: 20200218
  Receipt Date: 20200218
  Transmission Date: 20200409
  Serious: Yes (Hospitalization)
  Sender: FDA-Public Use
  Company Number: None

PATIENT
  Age: 31 Year
  Sex: Male

DRUGS (1)
  1. RIVAROXABAN (RIVAROXABAN 15MG TAB) [Suspect]
     Active Substance: RIVAROXABAN
     Indication: DEEP VEIN THROMBOSIS
     Route: 048
     Dates: start: 20181217, end: 20181219

REACTIONS (5)
  - Metastases to liver [None]
  - Gastrointestinal haemorrhage [None]
  - Haemorrhage [None]
  - Failure to thrive [None]
  - Metastases to lung [None]

NARRATIVE: CASE EVENT DATE: 20181218
